FAERS Safety Report 18743492 (Version 1)
Quarter: 2021Q1

REPORT INFORMATION
  Report Type: Spontaneous
  Country: US (occurrence: US)
  Receive Date: 20210114
  Receipt Date: 20210114
  Transmission Date: 20210419
  Serious: No
  Sender: FDA-Public Use
  Company Number: US-NOVOPROD-740995

PATIENT
  Age: 71 Year
  Sex: Female

DRUGS (2)
  1. OZEMPIC [Suspect]
     Active Substance: SEMAGLUTIDE
     Indication: TYPE 2 DIABETES MELLITUS
     Dosage: 0.5MG
     Route: 058
     Dates: start: 201909
  2. OZEMPIC [Suspect]
     Active Substance: SEMAGLUTIDE
     Dosage: DECREASED TO 0.25MG
     Route: 058

REACTIONS (4)
  - Pruritus [Not Recovered/Not Resolved]
  - Blood glucose decreased [Recovered/Resolved]
  - Weight increased [Not Recovered/Not Resolved]
  - Blood glucose increased [Recovered/Resolved]

NARRATIVE: CASE EVENT DATE: 20200306
